FAERS Safety Report 7751828-1 (Version None)
Quarter: 2011Q3

REPORT INFORMATION
  Report Type: 
  Country: None (occurrence: None)
  Receive Date: 20110914
  Receipt Date: 20110914
  Transmission Date: 20111222
  Serious: Yes (Hospitalization)
  Sender: FDA-Public Use
  Company Number: None

PATIENT
  Sex: Male
  Weight: 76 kg

DRUGS (2)
  1. CARBOPLATIN [Suspect]
     Dosage: 930 MG
     Dates: end: 20100902
  2. TAXOL [Suspect]
     Dosage: 380 MG
     Dates: end: 20100902

REACTIONS (3)
  - SEPTIC SHOCK [None]
  - LOBAR PNEUMONIA [None]
  - FEBRILE NEUTROPENIA [None]
